FAERS Safety Report 5211630-1 (Version None)
Quarter: 2007Q1

REPORT INFORMATION
  Report Type: 
  Country: None (occurrence: None)
  Receive Date: 20070118
  Receipt Date: 20070109
  Transmission Date: 20070707
  Serious: Yes (Life-Threatening, Hospitalization)
  Sender: FDA-Public Use
  Company Number: JP-JNJFOC-20061207023

PATIENT
  Sex: Male

DRUGS (11)
  1. RISPERDAL [Suspect]
     Route: 048
  2. RISPERDAL [Suspect]
     Route: 048
  3. RISPERDAL [Suspect]
     Route: 048
  4. RISPERDAL [Suspect]
     Route: 048
  5. RISPERDAL [Suspect]
     Indication: SCHIZOPHRENIA
     Route: 048
  6. LEMONAMIN [Suspect]
     Indication: SCHIZOPHRENIA
     Route: 048
  7. LEVOMEPROMAZINE MALEATE [Concomitant]
     Route: 048
  8. PROMETHAZINE HCL [Concomitant]
     Route: 048
  9. PANTETHINE [Concomitant]
     Route: 048
  10. VAGOSTIGMIN [Concomitant]
     Route: 048
  11. NELUROLEN [Concomitant]
     Route: 048

REACTIONS (1)
  - RHABDOMYOLYSIS [None]
